FAERS Safety Report 6572729-0 (Version None)
Quarter: 2010Q1

REPORT INFORMATION
  Report Type: 
  Country: None (occurrence: None)
  Receive Date: 20100205
  Receipt Date: 20100122
  Transmission Date: 20100710
  Serious: Yes (Hospitalization, Other)
  Sender: FDA-Public Use
  Company Number: US-TYCO HEALTHCARE/MALLINCKRODT-T201000540

PATIENT
  Age: 16 Year
  Sex: Male

DRUGS (14)
  1. FLUOXETINE [Suspect]
     Indication: ANXIETY
     Dosage: UNK
     Route: 048
  2. FLUOXETINE [Suspect]
     Dosage: 30 MG, QD
  3. FLUOXETINE [Suspect]
     Dosage: 40 MG, QD
     Route: 048
  4. FLUOXETINE [Suspect]
     Dosage: 50 MG, QD
     Route: 048
  5. PIMOZIDE [Suspect]
     Dosage: 1 MG, UNK
  6. PIMOZIDE [Suspect]
     Dosage: 3 MG DAILY
  7. RISPERIDONE [Suspect]
  8. TETRABENAZINE [Suspect]
  9. FLUPHENAZINE [Concomitant]
     Dosage: 30 MG
  10. ZIPRASIDONE HCL [Concomitant]
  11. TOPIRAMATE [Concomitant]
  12. ARIPIPRAZOLE [Concomitant]
  13. MIDAZOLAM HCL [Concomitant]
  14. ZOLPIDEM [Concomitant]

REACTIONS (5)
  - DEPRESSION SUICIDAL [None]
  - DRUG INTERACTION [None]
  - ELECTROCARDIOGRAM QT PROLONGED [None]
  - MUSCULOSKELETAL STIFFNESS [None]
  - TIC [None]
